FAERS Safety Report 25274131 (Version 2)
Quarter: 2025Q2

REPORT INFORMATION
  Report Type: Spontaneous
  Country: IT (occurrence: IT)
  Receive Date: 20250506
  Receipt Date: 20250522
  Transmission Date: 20250717
  Serious: Yes (Hospitalization, Other)
  Sender: BRISTOL-MYERS SQUIBB COMPANY
  Company Number: None

PATIENT
  Age: 85 Year
  Sex: Female
  Weight: 46 kg

DRUGS (7)
  1. ELIQUIS [Suspect]
     Active Substance: APIXABAN
     Indication: Thrombosis prophylaxis
     Dosage: ELIQUIS 5MG, 2 TABLETS/DAY: 1 TABLET AT 8:00 AM AND 1 TABLET AT 8:00 PM. THE DATE OF START OF THERAP
     Route: 048
  2. ELIQUIS [Suspect]
     Active Substance: APIXABAN
     Indication: Deep vein thrombosis
  3. ELIQUIS [Suspect]
     Active Substance: APIXABAN
     Indication: Pulmonary embolism
  4. NEBIVOLOL HYDROCHLORIDE [Concomitant]
     Active Substance: NEBIVOLOL HYDROCHLORIDE
     Indication: Hypertension
     Dosage: LOBIVON 28CPR 5MG, 1CPR/DAY: 1CPR AT 8:00 AM. THE DATE OF START OF THERAPY IS NOT KNOWN.
     Route: 048
  5. HYDROCHLOROTHIAZIDE\VALSARTAN [Concomitant]
     Active Substance: HYDROCHLOROTHIAZIDE\VALSARTAN
     Indication: Hypertension
     Dosage: COTAREG*28CPR RIV 160MG+12.5MG, 1CPR/DAY: 1CPR AT 8:00 AM. THE DATE OF START OF THERAPY IS NOT KNOWN
     Route: 048
  6. BROMAZEPAM [Concomitant]
     Active Substance: BROMAZEPAM
     Indication: Anxiety
     Route: 048
  7. PANTOPRAZOLE [Concomitant]
     Active Substance: PANTOPRAZOLE
     Indication: Gastrooesophageal reflux disease
     Dosage: PANTOPRAZOLE 20MG, 1CPR/DAY: 1CPR AT 8:00 AM. THE DATE OF START OF THERAPY IS NOT KNOWN.
     Route: 048

REACTIONS (1)
  - Cerebral haemorrhage [Recovering/Resolving]

NARRATIVE: CASE EVENT DATE: 20250417
